FAERS Safety Report 4342385-0 (Version None)
Quarter: 2004Q2

REPORT INFORMATION
  Report Type: 
  Country: None (occurrence: None)
  Receive Date: 20040421
  Receipt Date: 20040311
  Transmission Date: 20050107
  Serious: Yes (Other)
  Sender: FDA-Public Use
  Company Number: PHEH2004US02899

PATIENT
  Age: 70 Year
  Sex: Male

DRUGS (2)
  1. FORADIL [Suspect]
     Indication: ASTHMA
     Dosage: 12 UG, Q12H
     Dates: start: 20030901, end: 20040201
  2. ACE INHIBITOR NOS [Concomitant]

REACTIONS (4)
  - CEREBROVASCULAR ACCIDENT [None]
  - HYPERTENSION [None]
  - MEDICATION ERROR [None]
  - SPEECH DISORDER [None]
